FAERS Safety Report 7797733-6 (Version None)
Quarter: 2011Q4

REPORT INFORMATION
  Report Type: 
  Country: None (occurrence: None)
  Receive Date: 20111005
  Receipt Date: 20110930
  Transmission Date: 20120403
  Serious: Yes (Death, Other)
  Sender: FDA-Public Use
  Company Number: PHHY2011JP65790

PATIENT
  Age: 45 Year
  Sex: Male
  Weight: 80 kg

DRUGS (80)
  1. WHITE PETROLEUM [Concomitant]
     Dosage: 2000 G, UNK
     Dates: start: 20090828, end: 20090914
  2. RINDERON A [Concomitant]
     Dosage: 6 MG, DAILY
     Dates: start: 20090905
  3. DOPAMINE HCL [Concomitant]
     Dosage: 8 DF, UNK
     Dates: start: 20090725
  4. CHLOR-TRIMETON [Concomitant]
     Dosage: 1 DF, UNK
     Dates: start: 20090823, end: 20090823
  5. SOLITA-T NO.3 [Concomitant]
     Dosage: 2 DF, UNK
     Dates: start: 20090725, end: 20090828
  6. HICALIQ RF [Concomitant]
     Dosage: 1 DF, UNK
     Dates: start: 20090729, end: 20090813
  7. VITAMEDIN [Concomitant]
     Dosage: 1 DF, UNK
     Dates: start: 20090725
  8. HUMULIN R [Concomitant]
     Dosage: 0.1 DF, UNK
     Dates: start: 20090830, end: 20090914
  9. BICARBON [Concomitant]
     Dosage: 4 DF, UNK
     Dates: start: 20090725
  10. RINDERON A [Concomitant]
     Dosage: 2 MG, DAILY
     Dates: start: 20090911
  11. KENKETSU VENOGLOBULIN-IH [Concomitant]
     Dosage: 2 DF, UNK
     Dates: start: 20090830
  12. DEXTROSE [Concomitant]
     Dosage: 2 DF, UNK
     Dates: start: 20090914
  13. DEXTROSE [Concomitant]
     Dosage: 8.5 DF, UNK
  14. DOBUTREX [Concomitant]
     Dosage: 8 DF, UNK
     Dates: start: 20110725, end: 20090726
  15. NOREPINEPHRINE BITARTRATE [Concomitant]
     Dosage: 31 DF, UNK
     Dates: start: 20090725
  16. BISOLVON [Concomitant]
     Dosage: 4 DF, UNK
     Dates: start: 20090729
  17. SODIUM BICARBONATE [Concomitant]
     Dosage: 2 DF, UNK
     Dates: start: 20090914
  18. LACTEC [Concomitant]
     Dosage: 1 DF, UNK
     Dates: start: 20090814, end: 20090827
  19. VOLTAREN [Suspect]
     Dosage: 2 DF, DAILY
     Route: 054
     Dates: start: 20090814, end: 20090825
  20. PHENYTOIN SODIUM CAP [Suspect]
     Indication: GRAND MAL CONVULSION
     Dosage: 1 DF, DAILY
     Route: 042
     Dates: start: 20090815, end: 20090820
  21. BARAMYCIN [Concomitant]
     Dosage: 1000 G, UNK
     Dates: start: 20090826, end: 20090911
  22. RINDERON A [Concomitant]
     Dosage: 10 G, UNK
     Dates: start: 20090901, end: 20090901
  23. EPHEDRIN [Concomitant]
     Dosage: 1 DF, UNK
     Dates: start: 20090725, end: 20090725
  24. KENKETSU VENOGLOBULIN-IH [Concomitant]
     Dosage: 1 DF, UNK
     Dates: end: 20090914
  25. ISOTONIC SODIUM CHLORIDE SOLUTION [Concomitant]
     Dosage: 4 DF, UNK
  26. ISOTONIC SODIUM CHLORIDE SOLUTION [Concomitant]
     Dosage: 1 DF, UNK
     Dates: end: 20090815
  27. ELASPOL [Concomitant]
     Dosage: 4 DF, UNK
     Dates: start: 20090725
  28. ASPARTATE POTASSIUM [Concomitant]
     Dosage: 2 DF, UNK
     Dates: start: 20090821
  29. DEXTROSE [Concomitant]
     Dosage: 5 DF, UNK
  30. DEXTROSE [Concomitant]
     Dosage: 9 DF, UNK
  31. DEXTROSE [Concomitant]
     Dosage: 2 DF, UNK
  32. PREDNISOLONE [Concomitant]
     Dosage: 5 DF, UNK
     Dates: start: 20090826, end: 20090831
  33. STADOL [Concomitant]
     Dosage: 2 DF, UNK
     Dates: start: 20090729, end: 20090805
  34. HEPARIN SODIUM [Concomitant]
     Dosage: 1 DF, UNK
     Dates: start: 20090730, end: 20090810
  35. DIAZEPAM [Concomitant]
     Dosage: 1 DF, UNK
     Dates: start: 20090815, end: 20090915
  36. BETAMETHASONE [Concomitant]
     Dosage: 5 DF, UNK
     Dates: start: 20090901, end: 20090911
  37. REMINARON [Concomitant]
     Dosage: 4 DF, UNK
     Dates: start: 20090831
  38. LENDORMIN [Concomitant]
     Dosage: 3 DF, UNK
     Route: 048
     Dates: start: 20090812, end: 20090909
  39. ATARAX [Concomitant]
     Dosage: 1 DF, UNK
     Dates: start: 20090821, end: 20090827
  40. ALBUMINAR [Concomitant]
     Dosage: 2 DF, UNK
     Dates: start: 20090814
  41. ALBUMINAR [Concomitant]
     Dosage: 4 DF, UNK
     Dates: end: 20090910
  42. VEEN D [Concomitant]
     Dosage: 2 DF, UNK
     Dates: start: 20090829, end: 20090902
  43. NAFAMOSTAT MESILATE [Concomitant]
     Dosage: 8 DF, UNK
     Dates: start: 20090725, end: 20090728
  44. FIRSTCIN [Concomitant]
     Dosage: 0.5 G, UNK
     Dates: start: 20090811, end: 20090814
  45. BUPRENORPHINE HCL [Concomitant]
     Dosage: 4 DF, UNK
     Dates: start: 20090803, end: 20090911
  46. MEROPENEM [Suspect]
     Indication: INFECTION
     Dosage: 0.5 G, BID
     Dates: start: 20090816, end: 20090820
  47. LEVOFLOXACIN [Concomitant]
     Dosage: 6 DF, UNK
     Route: 048
     Dates: start: 20090825, end: 20090904
  48. GLUCONSAN K [Concomitant]
     Dosage: 7.5 G, UNK
     Route: 048
     Dates: start: 20090822, end: 20090824
  49. DEXTROSE [Concomitant]
     Dosage: 5 DF, UNK
  50. PREDNISOLONE [Concomitant]
     Dosage: 100 MG, DAILY
     Dates: start: 20090825
  51. ISOTONIC SODIUM CHLORIDE SOLUTION [Concomitant]
     Dosage: 4 DF, UNK
     Dates: start: 20090728
  52. HYDROCORTONE [Concomitant]
     Dosage: 2 DF, UNK
     Dates: start: 20090914, end: 20090914
  53. PANTOL [Concomitant]
     Dosage: 2 DF, UNK
     Dates: start: 20090729
  54. VANCOMYCIN [Concomitant]
     Dosage: 4 DF, UNK
     Dates: start: 20090814, end: 20090901
  55. HESPANDER [Concomitant]
     Dosage: 2 DF, UNK
     Dates: start: 20090814, end: 20090829
  56. URSO 250 [Concomitant]
     Dosage: 6 DF, UNK
     Route: 048
     Dates: start: 20090804, end: 20090828
  57. BIOFERMIN [Concomitant]
     Dosage: 9 G, UNK
     Route: 048
     Dates: start: 20090728
  58. NEO-MINOPHAGEN C [Concomitant]
     Dosage: 2 DF, UNK
     Dates: start: 20090805, end: 20090817
  59. KETALAR [Concomitant]
     Dosage: 3 DF, UNK
     Dates: start: 20090725, end: 20090726
  60. DEXTROSE [Concomitant]
     Dosage: 8.2 DF, UNK
  61. SOLITA-T NO.1 [Concomitant]
     Dosage: 5 DF, UNK
     Dates: start: 20090725, end: 20090901
  62. SOLITA-T NO.4 [Concomitant]
     Dosage: 7 DF, UNK
     Dates: start: 20090901
  63. VITAJECT [Concomitant]
     Dosage: 1 DF, UNK
     Dates: start: 20090729, end: 20090813
  64. PIPERACILLIN SODIUM [Concomitant]
     Dosage: 4 G, UNK
     Dates: start: 20090731, end: 20090810
  65. NITROGLYCERIN [Concomitant]
     Dosage: 2 DF, UNK
     Dates: start: 20090806, end: 20090807
  66. SODIUM BICARBONATE [Concomitant]
     Dosage: 1 DF, UNK
  67. CONIEL [Concomitant]
     Dosage: 2 DF, UNK
     Route: 048
     Dates: start: 20090813, end: 20090909
  68. ACETAMINOPHEN [Concomitant]
     Dosage: 12.5 G, UNK
     Route: 048
     Dates: start: 20090814, end: 20090814
  69. LAC B [Concomitant]
     Dosage: 9 G, UNK
     Route: 048
     Dates: start: 20090728
  70. AMBISOME [Concomitant]
     Dosage: 3 DF, UNK
     Dates: start: 20090914, end: 20090914
  71. DOPAMINE HCL [Concomitant]
     Dosage: 4 DF, UNK
  72. PROPOFOL [Concomitant]
     Dosage: 4 DF, UNK
     Dates: start: 20090828, end: 20090914
  73. CALCIUM CARBONATE [Concomitant]
     Dosage: 3 DF, UNK
     Dates: start: 20090725
  74. ZANTAC [Concomitant]
     Dosage: 4 DF, UNK
     Dates: start: 20090725, end: 20090813
  75. CEFAZOLIN [Concomitant]
     Dosage: 2 G, UNK
     Dates: start: 20090725, end: 20090731
  76. MIDAZOLAM HCL [Concomitant]
     Dosage: 24 DF, UNK
     Dates: start: 20090725, end: 20090813
  77. NEOAMIYU [Concomitant]
     Dosage: 1 DF, UNK
     Dates: start: 20090729, end: 20090813
  78. BOSMIN [Concomitant]
     Dosage: 12 DF, UNK
  79. METHOXAMINE HYDROCHLORIDE [Concomitant]
     Dosage: 2 DF, UNK
     Dates: start: 20090725, end: 20090725
  80. LASIX [Concomitant]
     Dosage: 8 DF, UNK
     Dates: start: 20090726

REACTIONS (28)
  - LIP EROSION [None]
  - BLOOD CREATININE INCREASED [None]
  - MULTI-ORGAN FAILURE [None]
  - RESPIRATORY DISORDER [None]
  - GENERALISED ERYTHEMA [None]
  - SKIN LESION [None]
  - SKIN EXFOLIATION [None]
  - SKIN EROSION [None]
  - C-REACTIVE PROTEIN INCREASED [None]
  - SCROTAL ULCER [None]
  - PROTEIN TOTAL DECREASED [None]
  - BLOOD PRESSURE DECREASED [None]
  - PNEUMONIA [None]
  - OCULAR HYPERAEMIA [None]
  - PYREXIA [None]
  - ANTIBIOTIC RESISTANT STAPHYLOCOCCUS TEST POSITIVE [None]
  - WOUND [None]
  - ERYTHEMA MULTIFORME [None]
  - PETECHIAE [None]
  - SKIN ATROPHY [None]
  - ASPARTATE AMINOTRANSFERASE INCREASED [None]
  - WHITE BLOOD CELL COUNT INCREASED [None]
  - TOXIC EPIDERMAL NECROLYSIS [None]
  - RASH [None]
  - ERYTHEMA [None]
  - SKIN DISCOLOURATION [None]
  - SCAB [None]
  - NIKOLSKY'S SIGN [None]
